FAERS Safety Report 10100384 (Version 1)
Quarter: 2014Q2

REPORT INFORMATION
  Report Type: Spontaneous
  Country: US (occurrence: US)
  Receive Date: 20140423
  Receipt Date: 20140423
  Transmission Date: 20141212
  Serious: No
  Sender: FDA-Public Use
  Company Number: US-PFIZER INC-2014108367

PATIENT
  Age: 48 Year
  Sex: Female

DRUGS (2)
  1. PROVERA [Suspect]
     Indication: DYSFUNCTIONAL UTERINE BLEEDING
     Dosage: UNK
  2. TRI-SPRINTEC [Suspect]
     Indication: HAEMORRHAGE
     Dosage: UNK

REACTIONS (1)
  - Drug ineffective [Unknown]
